FAERS Safety Report 25799032 (Version 2)
Quarter: 2025Q3

REPORT INFORMATION
  Report Type: Spontaneous
  Country: EU (occurrence: EU)
  Receive Date: 20250913
  Receipt Date: 20250922
  Transmission Date: 20251020
  Serious: Yes (Other)
  Sender: AUROBINDO
  Company Number: EU-AUROBINDO-AUR-APL-2025-045597

PATIENT
  Age: 33 Year
  Sex: Male

DRUGS (2)
  1. AMIODARONE [Suspect]
     Active Substance: AMIODARONE
     Indication: Arrhythmia
     Route: 065
  2. SOTALOL [Suspect]
     Active Substance: SOTALOL
     Indication: Arrhythmia
     Route: 065

REACTIONS (1)
  - Treatment failure [Unknown]
